FAERS Safety Report 15357534 (Version 1)
Quarter: 2018Q3

REPORT INFORMATION
  Report Type: Spontaneous
  Country: US (occurrence: US)
  Receive Date: 20180830
  Receipt Date: 20180830
  Transmission Date: 20181010
  Serious: Yes (Life-Threatening, Other)
  Sender: FDA-Public Use
  Company Number: None

PATIENT
  Age: 53 Year
  Sex: Female
  Weight: 116.1 kg

DRUGS (9)
  1. IRBESARTIN [Concomitant]
  2. METFORMIN [Suspect]
     Active Substance: METFORMIN HYDROCHLORIDE
     Indication: TYPE 2 DIABETES MELLITUS
     Dosage: ?          QUANTITY:2 TABLET(S);?
     Route: 048
  3. LIPITOR [Concomitant]
     Active Substance: ATORVASTATIN CALCIUM
  4. PLAVIX [Concomitant]
     Active Substance: CLOPIDOGREL BISULFATE
  5. COQ10 [Concomitant]
     Active Substance: UBIDECARENONE
  6. HYDROCODONE [Concomitant]
     Active Substance: HYDROCODONE
  7. ELQUIS [Concomitant]
  8. MULTI VITAMIN [Concomitant]
     Active Substance: VITAMINS
  9. METFORMIN ER [Concomitant]
     Active Substance: METFORMIN HYDROCHLORIDE

REACTIONS (2)
  - Deformity [None]
  - Gangrene [None]

NARRATIVE: CASE EVENT DATE: 20150426
